FAERS Safety Report 7753492-4 (Version None)
Quarter: 2011Q3

REPORT INFORMATION
  Report Type: 
  Country: None (occurrence: None)
  Receive Date: 20110915
  Receipt Date: 20110902
  Transmission Date: 20111222
  Serious: Yes (Other)
  Sender: FDA-Public Use
  Company Number: US-BAYER-2011-082646

PATIENT
  Sex: Female

DRUGS (1)
  1. ASPIRIN [Suspect]
     Indication: ANALGESIC THERAPY
     Dosage: UNK MG, UNK
     Route: 048

REACTIONS (3)
  - PRODUCT QUALITY ISSUE [None]
  - THROAT IRRITATION [None]
  - CHOKING [None]
